FAERS Safety Report 10451051 (Version 1)
Quarter: 2014Q3

REPORT INFORMATION
  Report Type: Spontaneous
  Country: IR (occurrence: IR)
  Receive Date: 20140912
  Receipt Date: 20140912
  Transmission Date: 20150326
  Serious: Yes (Hospitalization)
  Sender: FDA-Public Use
  Company Number: PHHY2014IR112245

PATIENT
  Age: 6 Year
  Sex: Male

DRUGS (1)
  1. METHADONE [Suspect]
     Active Substance: METHADONE HYDROCHLORIDE
     Indication: OFF LABEL USE
     Dosage: 1 TABLESPOON, UNK

REACTIONS (15)
  - Drug administration error [Unknown]
  - Breath sounds abnormal [Recovering/Resolving]
  - Agitation [Recovering/Resolving]
  - Restlessness [Recovering/Resolving]
  - Toxicity to various agents [Unknown]
  - Miosis [Recovering/Resolving]
  - Respiratory acidosis [Recovering/Resolving]
  - Slow response to stimuli [Recovering/Resolving]
  - Tonsillar inflammation [Recovering/Resolving]
  - Confusional state [Recovering/Resolving]
  - Tonsillar hypertrophy [Recovering/Resolving]
  - Stridor [Recovering/Resolving]
  - Respiratory distress [Recovering/Resolving]
  - Respiratory arrest [Recovering/Resolving]
  - Depressed level of consciousness [Recovering/Resolving]
